FAERS Safety Report 12479126 (Version 1)
Quarter: 2016Q2

REPORT INFORMATION
  Report Type: Report from Study
  Country: US (occurrence: US)
  Receive Date: 20160620
  Receipt Date: 20160620
  Transmission Date: 20160815
  Serious: Yes (Hospitalization, Other)
  Sender: FDA-Public Use
  Company Number: US-SHIRE-US201605876

PATIENT
  Age: 52 Year
  Sex: Female
  Weight: 67.57 kg

DRUGS (1)
  1. PARATHYROID HORMONE [Suspect]
     Active Substance: PARATHYROID HORMONE
     Indication: HYPOPARATHYROIDISM
     Dosage: 75 ?G, 1X/DAY:QD
     Route: 058
     Dates: start: 20100610

REACTIONS (7)
  - Pyrexia [Unknown]
  - Renal pain [Unknown]
  - Nephrolithiasis [Unknown]
  - Decreased appetite [Unknown]
  - Hydronephrosis [Unknown]
  - Back pain [Unknown]
  - Chills [Unknown]

NARRATIVE: CASE EVENT DATE: 201511
